FAERS Safety Report 25630428 (Version 1)
Quarter: 2025Q3

REPORT INFORMATION
  Report Type: Spontaneous
  Country: US (occurrence: US)
  Receive Date: 20250801
  Receipt Date: 20250801
  Transmission Date: 20251020
  Serious: Yes (Hospitalization, Other)
  Sender: PROCTER AND GAMBLE
  Company Number: US-PROCTER+GAMBLE-PH25010805

PATIENT
  Age: 68 Year
  Sex: Female

DRUGS (1)
  1. VICKS VAPORUB [Suspect]
     Active Substance: CAMPHOR (SYNTHETIC)\EUCALYPTUS OIL\MENTHOL

REACTIONS (10)
  - Pneumonia lipoid [Recovering/Resolving]
  - Acute lung injury [Recovering/Resolving]
  - Pulmonary toxicity [Recovering/Resolving]
  - Hypoxia [Recovering/Resolving]
  - Dyspnoea [Recovering/Resolving]
  - Electrocardiogram QT prolonged [Recovering/Resolving]
  - Lung opacity [Recovering/Resolving]
  - Accidental exposure to product by elderly person [Unknown]
  - Exposure via inhalation [Unknown]
  - Wrong technique in product usage process [Unknown]
